FAERS Safety Report 25039587 (Version 1)
Quarter: 2025Q1

REPORT INFORMATION
  Report Type: Spontaneous
  Country: US (occurrence: US)
  Receive Date: 20250305
  Receipt Date: 20250305
  Transmission Date: 20250409
  Serious: No
  Sender: GLENMARK
  Company Number: US-GLENMARK PHARMACEUTICALS-2024GMK092371

PATIENT

DRUGS (2)
  1. POTASSIUM CHLORIDE EXTENDED RELEASE [Suspect]
     Active Substance: POTASSIUM CHLORIDE
     Indication: Product used for unknown indication
     Dosage: 1 DOSAGE FORM, TID (FIRST BOTTLE)
     Route: 065
  2. POTASSIUM CHLORIDE EXTENDED RELEASE [Suspect]
     Active Substance: POTASSIUM CHLORIDE
     Dosage: 1 DOSAGE FORM, TID (SECOND BOTTLE)
     Route: 065

REACTIONS (1)
  - Headache [Unknown]
